FAERS Safety Report 13743773 (Version 1)
Quarter: 2017Q3

REPORT INFORMATION
  Report Type: Report from Study
  Country: US (occurrence: US)
  Receive Date: 20170711
  Receipt Date: 20170711
  Transmission Date: 20171127
  Serious: Yes (Other)
  Sender: FDA-Public Use
  Company Number: US-UCBSA-2017024877

PATIENT
  Age: 9 Year
  Sex: Female

DRUGS (3)
  1. VIMPAT [Suspect]
     Active Substance: LACOSAMIDE
     Indication: PETIT MAL EPILEPSY
     Dosage: UNKNOWN DOSE
     Dates: start: 2017, end: 2017
  2. ZARONTIN [Suspect]
     Active Substance: ETHOSUXIMIDE
     Indication: PETIT MAL EPILEPSY
     Dosage: UNK
     Dates: start: 2017, end: 2017
  3. DEPAKOTE [Suspect]
     Active Substance: DIVALPROEX SODIUM
     Indication: PETIT MAL EPILEPSY
     Dosage: UNK
     Dates: start: 2017, end: 2017

REACTIONS (6)
  - Seizure [Recovered/Resolved]
  - Drug ineffective [Unknown]
  - Personality change [Unknown]
  - Abdominal pain upper [Unknown]
  - Adverse drug reaction [Unknown]
  - Vomiting [Unknown]

NARRATIVE: CASE EVENT DATE: 2017
